FAERS Safety Report 22171073 (Version 3)
Quarter: 2023Q2

REPORT INFORMATION
  Report Type: Spontaneous
  Country: US (occurrence: US)
  Receive Date: 20230404
  Receipt Date: 20230420
  Transmission Date: 20230722
  Serious: Yes (Disabling)
  Sender: FDA-Public Use
  Company Number: US-SANOFI-01555361

PATIENT
  Age: 73 Year
  Sex: Female

DRUGS (3)
  1. TOUJEO MAX [Suspect]
     Active Substance: INSULIN GLARGINE
     Indication: Diabetes mellitus
     Dosage: 80 U, QD
     Dates: start: 2023, end: 2023
  2. TOUJEO MAX [Suspect]
     Active Substance: INSULIN GLARGINE
     Dosage: 74 U
     Dates: start: 2023, end: 2023
  3. TOUJEO MAX [Suspect]
     Active Substance: INSULIN GLARGINE
     Dosage: 72 U QD
     Dates: start: 2023

REACTIONS (4)
  - Intervertebral disc disorder [Unknown]
  - Hypoaesthesia [Unknown]
  - Blood glucose decreased [Unknown]
  - Intentional product use issue [Unknown]
